FAERS Safety Report 9331897 (Version 1)
Quarter: 2013Q2

REPORT INFORMATION
  Report Type: Report from Study
  Country: US (occurrence: US)
  Receive Date: 20130605
  Receipt Date: 20130605
  Transmission Date: 20140414
  Serious: Yes (Other)
  Sender: FDA-Public Use
  Company Number: US-ABBOTT-13P-163-1097203-00

PATIENT
  Age: 58 Year
  Sex: Female

DRUGS (20)
  1. HUMIRA [Suspect]
     Indication: RHEUMATOID ARTHRITIS
     Route: 058
  2. HUMIRA [Suspect]
     Route: 058
  3. HUMIRA [Suspect]
     Route: 058
  4. PREDNISONE [Concomitant]
     Indication: MYASTHENIA GRAVIS
     Dosage: 10 MG IN AM AND 2.5 MG AS NEEDED IN AFTERNOON
  5. SYNTHROID [Concomitant]
     Indication: THYROID HORMONE REPLACEMENT THERAPY
  6. MAXIDE [Concomitant]
     Indication: HYPERTENSION
  7. MAXIDE [Concomitant]
     Indication: RENAL LITHIASIS PROPHYLAXIS
  8. ZANAFLEX [Concomitant]
     Indication: MUSCLE SPASMS
     Dosage: IN THE EVENINGS
  9. REGLAN [Concomitant]
     Indication: PRODUCT USED FOR UNKNOWN INDICATION
  10. NEXIUM [Concomitant]
     Indication: GASTROOESOPHAGEAL REFLUX DISEASE
  11. CARAFATE [Concomitant]
     Indication: GASTROOESOPHAGEAL REFLUX DISEASE
  12. PRAVACHOL [Concomitant]
     Indication: BLOOD CHOLESTEROL INCREASED
  13. METHOTREXATE [Concomitant]
     Indication: RHEUMATOID ARTHRITIS
  14. FOLTX [Concomitant]
     Indication: SUPPLEMENTATION THERAPY
  15. EFFEXOR [Concomitant]
     Indication: DEPRESSION
  16. NEUROTIN [Concomitant]
     Indication: MYASTHENIA GRAVIS
     Dosage: 300 MG IN AM, 300 MG IN AFTERNOON AS NEEDED FROM MYASTHENIA GRAVIS AND 600 MG AT BEDTIME
  17. MESTINON [Concomitant]
     Indication: MYASTHENIA GRAVIS
  18. XODOL [Concomitant]
     Indication: PAIN
  19. BABY ASPIRIN [Concomitant]
     Indication: PROPHYLAXIS
  20. ELAVIL [Concomitant]
     Indication: INSOMNIA
     Dosage: AT BEDTIME

REACTIONS (8)
  - Hiatus hernia [Recovered/Resolved]
  - Malignant melanoma [Not Recovered/Not Resolved]
  - Infection [Recovered/Resolved]
  - Oropharyngeal pain [Recovered/Resolved]
  - Nasopharyngitis [Recovered/Resolved]
  - Rheumatoid arthritis [Recovered/Resolved]
  - Urinary tract infection [Not Recovered/Not Resolved]
  - Blood potassium decreased [Not Recovered/Not Resolved]
